FAERS Safety Report 16228077 (Version 1)
Quarter: 2019Q2

REPORT INFORMATION
  Report Type: Spontaneous
  Country: US (occurrence: US)
  Receive Date: 20190422
  Receipt Date: 20190422
  Transmission Date: 20190711
  Serious: No
  Sender: FDA-Public Use
  Company Number: None

PATIENT
  Age: 73 Year
  Sex: Male
  Weight: 96.3 kg

DRUGS (1)
  1. FLUOXETINE [Suspect]
     Active Substance: FLUOXETINE HYDROCHLORIDE
     Indication: DEPRESSION
     Dosage: ?          QUANTITY:1 PATCH(ES);?
     Route: 067
     Dates: start: 20190409, end: 20190422

REACTIONS (3)
  - Product prescribing error [None]
  - Product packaging quantity issue [None]
  - Incorrect dose administered [None]

NARRATIVE: CASE EVENT DATE: 20190409
